FAERS Safety Report 20370946 (Version 1)
Quarter: 2022Q1

REPORT INFORMATION
  Report Type: Spontaneous
  Country: US (occurrence: US)
  Receive Date: 20220124
  Receipt Date: 20220124
  Transmission Date: 20220424
  Serious: Yes (Hospitalization, Other)
  Sender: FDA-Public Use
  Company Number: US-LUPIN PHARMACEUTICALS INC.-2022-00794

PATIENT
  Sex: Female

DRUGS (1)
  1. TESTOSTERONE [Suspect]
     Active Substance: TESTOSTERONE
     Indication: Gender reassignment therapy
     Dosage: UNK
     Route: 065

REACTIONS (8)
  - Depression [Not Recovered/Not Resolved]
  - Impaired self-care [Not Recovered/Not Resolved]
  - Suicidal ideation [Unknown]
  - Euphoric mood [Unknown]
  - Affect lability [Unknown]
  - Disorientation [Unknown]
  - Anxiety [Not Recovered/Not Resolved]
  - Anger [Not Recovered/Not Resolved]
